FAERS Safety Report 5982754-6 (Version None)
Quarter: 2008Q4

REPORT INFORMATION
  Report Type: 
  Country: None (occurrence: None)
  Receive Date: 20081205
  Receipt Date: 20081205
  Transmission Date: 20090506
  Serious: Yes (Hospitalization)
  Sender: FDA-Public Use
  Company Number: None

PATIENT
  Age: 20 Year
  Sex: Female
  Weight: 48.9885 kg

DRUGS (1)
  1. GEODON [Suspect]
     Indication: BIPOLAR I DISORDER
     Dosage: 140 MG DAILY BUCCAL
     Route: 002
     Dates: start: 20080527, end: 20081204

REACTIONS (7)
  - HUNGER [None]
  - PARALYSIS [None]
  - RESPIRATORY ARREST [None]
  - SALIVARY HYPERSECRETION [None]
  - TARDIVE DYSKINESIA [None]
  - VISION BLURRED [None]
  - VOMITING [None]
